FAERS Safety Report 25461615 (Version 1)
Quarter: 2025Q2

REPORT INFORMATION
  Report Type: Spontaneous
  Country: ES (occurrence: ES)
  Receive Date: 20250620
  Receipt Date: 20250620
  Transmission Date: 20250716
  Serious: Yes (Hospitalization, Other)
  Sender: Halocarbon Life Sciences
  Company Number: ES-HALOCARBON LIFE SCIENCES, LLC-20250600011

PATIENT

DRUGS (1)
  1. SEVOFLURANE [Suspect]
     Active Substance: SEVOFLURANE
     Indication: Sedation

REACTIONS (2)
  - Hypernatraemia [Recovered/Resolved]
  - Renal impairment [Recovered/Resolved]
